FAERS Safety Report 5621300-3 (Version None)
Quarter: 2008Q1

REPORT INFORMATION
  Report Type: 
  Country: None (occurrence: None)
  Receive Date: 20080211
  Receipt Date: 20080128
  Transmission Date: 20080703
  Serious: Yes (Other)
  Sender: FDA-Public Use
  Company Number: US-JNJFOC-20080107695

PATIENT
  Age: 34 Year
  Sex: Female

DRUGS (5)
  1. TOPIRAMATE [Suspect]
  2. TOPIRAMATE [Suspect]
     Indication: MIGRAINE PROPHYLAXIS
  3. LEVOTHYROXINE SODIUM [Concomitant]
  4. METHYCLOTHIAZIDE [Concomitant]
  5. TRIAMTERENE [Concomitant]

REACTIONS (2)
  - ANGLE CLOSURE GLAUCOMA [None]
  - BLINDNESS [None]
